FAERS Safety Report 26127839 (Version 1)
Quarter: 2025Q4

REPORT INFORMATION
  Report Type: Report from Study
  Country: US (occurrence: US)
  Receive Date: 20251206
  Receipt Date: 20251206
  Transmission Date: 20260117
  Serious: Yes (Death, Other)
  Sender: AMGEN
  Company Number: US-AMGEN-USASL2025199923

PATIENT
  Age: 72 Year
  Sex: Female
  Weight: 45.4 kg

DRUGS (15)
  1. IMDELLTRA [Suspect]
     Active Substance: TARLATAMAB-DLLE
     Indication: Small cell lung cancer metastatic
     Dosage: 1 MILLIGRAM
     Route: 040
     Dates: start: 20250617
  2. TYLENOL [Concomitant]
     Active Substance: ACETAMINOPHEN
     Indication: Pain
     Dosage: 650 MILLIGRAM, Q4H
     Route: 048
  3. TYLENOL [Concomitant]
     Active Substance: ACETAMINOPHEN
     Indication: Pyrexia
  4. ASPIRIN [Concomitant]
     Active Substance: ASPIRIN
     Dosage: 81 MILLIGRAM, QD
  5. CALCIUM CARBONATE\CHOLECALCIFEROL [Concomitant]
     Active Substance: CALCIUM CARBONATE\CHOLECALCIFEROL
     Dosage: 10 MICROGRAM, BID
     Route: 048
  6. COENZYME Q10 [Concomitant]
     Active Substance: DIETARY SUPPLEMENT\UBIDECARENONE
     Dosage: 100 MILLIGRAM, QD
     Route: 048
     Dates: start: 20210830
  7. BENTYL [Concomitant]
     Active Substance: DICYCLOMINE HYDROCHLORIDE
     Dosage: 20 MILLIGRAM, Q6H
     Route: 048
     Dates: start: 20240918
  8. LOMOTIL [Concomitant]
     Active Substance: ATROPINE SULFATE\DIPHENOXYLATE HYDROCHLORIDE
     Dosage: UNK, 2.5-0.025 MG 4 TIMES DAILY
     Route: 048
     Dates: start: 20240826
  9. PEPCID [Concomitant]
     Active Substance: FAMOTIDINE
     Dosage: 40 MILLIGRAM, BID
     Route: 048
     Dates: start: 20210816
  10. FLONASE ALLERGY RELIEF [Concomitant]
     Active Substance: FLUTICASONE PROPIONATE
     Dosage: UNK, 2 SPRAYS BY NASAL ROUTE AS NEEDED
     Route: 045
     Dates: start: 20210830
  11. DUONEB [Concomitant]
     Active Substance: ALBUTEROL SULFATE\IPRATROPIUM BROMIDE
     Dosage: UNK, TAKE 3 MG BY NEBULIZATION EVERY 6 (SIX) HOURS AS NEEDED
  12. POTASSIUM CHLORIDE [Concomitant]
     Active Substance: POTASSIUM CHLORIDE
     Dosage: 10 MILLIEQUIVALENT, BID
     Route: 048
  13. ZOMETA [Concomitant]
     Active Substance: ZOLEDRONIC ACID
     Dosage: UNK, INJECT INTO THE VEIN INDICATIONS: GIVEN ON DAY 1 EVERY 6 MONTHS
     Route: 040
     Dates: start: 20231031
  14. OXYGEN [Concomitant]
     Active Substance: OXYGEN
  15. MIRTAZAPINE [Concomitant]
     Active Substance: MIRTAZAPINE
     Indication: Decreased appetite

REACTIONS (28)
  - Death [Fatal]
  - Delirium [Recovered/Resolved]
  - Thrombocytopenia [Unknown]
  - Anisocytosis [Unknown]
  - Red blood cell count decreased [Unknown]
  - Haemoglobin decreased [Unknown]
  - Haematocrit decreased [Unknown]
  - Mean cell volume increased [Unknown]
  - Red cell distribution width increased [Unknown]
  - Mean platelet volume increased [Unknown]
  - Nucleated red cells [Unknown]
  - Lymphocyte count decreased [Unknown]
  - Monocyte count decreased [Unknown]
  - Myelocyte count increased [Unknown]
  - Blood albumin decreased [Unknown]
  - Dizziness [Unknown]
  - Weight decreased [Unknown]
  - Arthralgia [Unknown]
  - Lung infiltration [Unknown]
  - Hypocalcaemia [Unknown]
  - Vitamin D decreased [Unknown]
  - Oedema peripheral [Unknown]
  - Contusion [Unknown]
  - Muscle atrophy [Unknown]
  - Fall [Unknown]
  - Confusional state [Unknown]
  - Pleural effusion [Unknown]
  - Parainfluenza virus test positive [Unknown]

NARRATIVE: CASE EVENT DATE: 20250101
